FAERS Safety Report 18754502 (Version 1)
Quarter: 2021Q1

REPORT INFORMATION
  Report Type: Spontaneous
  Country: US (occurrence: US)
  Receive Date: 20210119
  Receipt Date: 20210119
  Transmission Date: 20210419
  Serious: Yes (Hospitalization, Other)
  Sender: FDA-Public Use
  Company Number: US-ALEMBIC PHARMACUETICALS LIMITED-2021SCAL000020

PATIENT

DRUGS (1)
  1. ACYCLOVIR. [Suspect]
     Active Substance: ACYCLOVIR
     Indication: HERPES ZOSTER
     Dosage: 1000 MILLIGRAM, TID
     Route: 065

REACTIONS (5)
  - Agitation [Recovered/Resolved]
  - Hallucinations, mixed [Recovered/Resolved]
  - Neurotoxicity [Recovered/Resolved]
  - Anxiety [Recovered/Resolved]
  - Toxicity to various agents [Recovered/Resolved]
